FAERS Safety Report 14775920 (Version 2)
Quarter: 2019Q1

REPORT INFORMATION
  Report Type: Spontaneous
  Country: US (occurrence: US)
  Receive Date: 20180418
  Receipt Date: 20190114
  Transmission Date: 20190417
  Serious: No
  Sender: FDA-Public Use
  Company Number: US-MYLANLABS-2018M1024004

PATIENT
  Sex: Male

DRUGS (2)
  1. MUSE [Suspect]
     Active Substance: ALPROSTADIL
     Dosage: 1000 ?G, UNK
     Route: 066
  2. MUSE [Suspect]
     Active Substance: ALPROSTADIL
     Dosage: 1000 ?G, UNK
     Route: 066

REACTIONS (4)
  - Wrong technique in product usage process [Recovered/Resolved]
  - Product quality issue [Recovered/Resolved]
  - No adverse event [Unknown]
  - Drug ineffective [Unknown]
